FAERS Safety Report 17006638 (Version 2)
Quarter: 2019Q4

REPORT INFORMATION
  Report Type: Spontaneous
  Country: GB (occurrence: GB)
  Receive Date: 20191107
  Receipt Date: 20191125
  Transmission Date: 20200122
  Serious: Yes (Hospitalization)
  Sender: FDA-Public Use
  Company Number: GB-JNJFOC-20191101305

PATIENT
  Sex: Female
  Weight: 86.9 kg

DRUGS (1)
  1. SIMPONI [Suspect]
     Active Substance: GOLIMUMAB
     Indication: PSORIATIC ARTHROPATHY
     Dosage: 100MG /1ML
     Route: 058

REACTIONS (3)
  - Off label use [Unknown]
  - Hospitalisation [Unknown]
  - Product use issue [Unknown]
